FAERS Safety Report 19164163 (Version 2)
Quarter: 2021Q2

REPORT INFORMATION
  Report Type: Spontaneous
  Country: US (occurrence: US)
  Receive Date: 20210421
  Receipt Date: 20210504
  Transmission Date: 20210717
  Serious: Yes (Other)
  Sender: FDA-Public Use
  Company Number: US-PFIZER INC-2021375832

PATIENT
  Sex: Male

DRUGS (1)
  1. AZITHROMYCIN ANHYDROUS. [Suspect]
     Active Substance: AZITHROMYCIN ANHYDROUS
     Dosage: UNK, DAILY

REACTIONS (5)
  - Pleural effusion [Unknown]
  - Pneumonia [Unknown]
  - Lung disorder [Unknown]
  - Off label use [Unknown]
  - Product use issue [Unknown]
